FAERS Safety Report 4911217-1 (Version None)
Quarter: 2006Q1

REPORT INFORMATION
  Report Type: 
  Country: None (occurrence: None)
  Receive Date: 20060209
  Receipt Date: 20040122
  Transmission Date: 20060701
  Serious: Yes (Hospitalization)
  Sender: FDA-Public Use
  Company Number: HQ4556908OCT2002

PATIENT
  Age: 66 Year
  Sex: Male

DRUGS (10)
  1. GEMTUZUMAB OZOGAMICIN (GEMTUZUMAB OZOGAMICIN, INJECTION) [Suspect]
     Indication: ACUTE MYELOID LEUKAEMIA
     Dosage: SEE IMAGE
     Route: 042
     Dates: start: 20020923, end: 20020923
  2. GEMTUZUMAB OZOGAMICIN (GEMTUZUMAB OZOGAMICIN, INJECTION) [Suspect]
     Indication: ACUTE MYELOID LEUKAEMIA
     Dosage: SEE IMAGE
     Route: 042
     Dates: start: 20020930, end: 20020930
  3. CYTARABINE [Concomitant]
  4. LISINOPRIL [Concomitant]
  5. TERAZOSIN (TERAZOSIN) [Concomitant]
  6. FLUCONAZOLE [Concomitant]
  7. VANCOMYCIN [Concomitant]
  8. MEROPENEM (MEROPENEM) [Concomitant]
  9. METOPROLOL SUCCINATE [Concomitant]
  10. CHLOROPHYLLIN SODIUM COPPER COMPLEX (CHLOROPHYLLIN SODIUM COOPER COMPL [Concomitant]

REACTIONS (9)
  - ALANINE AMINOTRANSFERASE INCREASED [None]
  - ASCITES [None]
  - ASPARTATE AMINOTRANSFERASE INCREASED [None]
  - BLOOD LACTATE DEHYDROGENASE INCREASED [None]
  - DYSPNOEA [None]
  - GAMMA-GLUTAMYLTRANSFERASE INCREASED [None]
  - HEPATIC STEATOSIS [None]
  - HYPOKALAEMIA [None]
  - LIVER FUNCTION TEST ABNORMAL [None]
